FAERS Safety Report 15623592 (Version 1)
Quarter: 2018Q4

REPORT INFORMATION
  Report Type: Spontaneous
  Country: US (occurrence: US)
  Receive Date: 20181115
  Receipt Date: 20181115
  Transmission Date: 20190205
  Serious: No
  Sender: FDA-Public Use
  Company Number: US-BAYER-2018-207282

PATIENT
  Age: 79 Year
  Sex: Male
  Weight: 67.98 kg

DRUGS (1)
  1. LOTRIMIN ULTRA ANTIFUNGAL [Suspect]
     Active Substance: BUTENAFINE HYDROCHLORIDE
     Indication: THERAPEUTIC SKIN CARE TOPICAL
     Dosage: UNK
     Route: 061

REACTIONS (3)
  - Product use in unapproved indication [None]
  - Off label use [Unknown]
  - Drug ineffective for unapproved indication [Unknown]
